FAERS Safety Report 8614734-6 (Version None)
Quarter: 2012Q3

REPORT INFORMATION
  Report Type: 
  Country: None (occurrence: None)
  Receive Date: 20120823
  Receipt Date: 20120418
  Transmission Date: 20120928
  Serious: Yes (Life-Threatening, Hospitalization, Other)
  Sender: FDA-Public Use
  Company Number: BE-ELI_LILLY_AND_COMPANY-BE201203005943

PATIENT
  Sex: Female
  Weight: 38 kg

DRUGS (6)
  1. STEOVIT D3 [Concomitant]
     Indication: OSTEOPOROSIS
     Dosage: 1 DF, QD
     Route: 048
  2. TRAMADOL HCL [Concomitant]
  3. VITAMIN B COMPLEX TAB [Concomitant]
     Indication: POLYNEUROPATHY
     Dosage: 1 DF, UNK
     Route: 048
  4. D-CURE [Concomitant]
     Indication: OSTEOPOROSIS
     Dosage: 1 DF, MONTHLY (1/M)
     Route: 048
  5. ACTIVELLE [Concomitant]
  6. FORTEO [Suspect]
     Indication: OSTEOPOROSIS
     Dosage: 20 UG, QD
     Route: 058
     Dates: start: 20110627, end: 20120201

REACTIONS (2)
  - METASTASES TO MENINGES [None]
  - ENCEPHALITIS HERPES [None]
